FAERS Safety Report 8711896 (Version 3)
Quarter: 2012Q4

REPORT INFORMATION
  Report Type: 
  Country: JP (occurrence: JP)
  Receive Date: 20120807
  Receipt Date: 20121017
  Transmission Date: 20130627
  Serious: Yes (Hospitalization)
  Sender: FDA-Public Use
  Company Number: JP-ELI_LILLY_AND_COMPANY-JP201207008633

PATIENT
  Age: 76 Year
  Sex: Female

DRUGS (2)
  1. FORTEO [Suspect]
     Dosage: UNK
     Route: 058
  2. FORTEO [Suspect]
     Dosage: UNK
     Route: 058

REACTIONS (4)
  - Hospitalisation [Recovered/Resolved]
  - Abdominal distension [Unknown]
  - Injection site bruising [Not Recovered/Not Resolved]
  - Dental care [Not Recovered/Not Resolved]
